FAERS Safety Report 7222074-5 (Version None)
Quarter: 2011Q1

REPORT INFORMATION
  Report Type: 
  Country: None (occurrence: None)
  Receive Date: 20110112
  Receipt Date: 20110105
  Transmission Date: 20110831
  Serious: Yes (Hospitalization)
  Sender: FDA-Public Use
  Company Number: US-JNJFOC-20101205126

PATIENT
  Sex: Female
  Weight: 57.2 kg

DRUGS (10)
  1. PROTON PUMP INHIBITOR [Concomitant]
  2. PROGESTIN INJ [Concomitant]
     Indication: CONTRACEPTION
  3. ANTIHISTAMINES [Concomitant]
     Indication: PREMEDICATION
  4. ACETAMINOPHEN [Concomitant]
     Indication: PREMEDICATION
  5. REMICADE [Suspect]
     Indication: INFLAMMATORY BOWEL DISEASE
     Route: 042
  6. REMICADE [Suspect]
     Route: 042
  7. MAGNESIUM [Concomitant]
  8. MESALAMINE [Concomitant]
     Route: 048
  9. VITAMIN TAB [Concomitant]
  10. TRICYCLIC ANTIDEPRESSANT [Concomitant]

REACTIONS (1)
  - INFUSION RELATED REACTION [None]
